FAERS Safety Report 9384345 (Version 2)
Quarter: 2013Q3

REPORT INFORMATION
  Report Type: Spontaneous
  Country: NL (occurrence: NL)
  Receive Date: 20130705
  Receipt Date: 20130731
  Transmission Date: 20140515
  Serious: Yes (Other)
  Sender: FDA-Public Use
  Company Number: PHHY2013NL069817

PATIENT
  Sex: Female

DRUGS (10)
  1. ZOMETA [Suspect]
     Indication: METASTASES TO BONE
     Dosage: 04 MG, ONCE EVERY MONTH
     Route: 041
     Dates: start: 201103, end: 20130214
  2. ZOMETA [Suspect]
     Dosage: UNK UKN, UNK
  3. ASCAL [Concomitant]
     Dosage: 38 MG, UNK
  4. PARACETAMOL [Concomitant]
     Dosage: UNK UKN, UNK
  5. PANTOZOL [Concomitant]
     Dosage: 40 MG, UNK
  6. TRIAMTEREEN [Concomitant]
     Dosage: UNK UKN, ONCE DAILY
  7. MONO CEDOCARD [Concomitant]
     Dosage: 2X25 MG, UNK
  8. ISORDIL [Concomitant]
     Dosage: 5 MG, UNK
  9. FUROSEMIDE [Concomitant]
     Dosage: 40 MG, UNK
  10. EXEMESTANE [Concomitant]
     Dosage: 25 MG, UNK

REACTIONS (3)
  - Osteonecrosis of jaw [Not Recovered/Not Resolved]
  - Musculoskeletal pain [Recovering/Resolving]
  - Pain in extremity [Unknown]
